FAERS Safety Report 7631349-7 (Version None)
Quarter: 2011Q3

REPORT INFORMATION
  Report Type: 
  Country: None (occurrence: None)
  Receive Date: 20110715
  Receipt Date: 20110705
  Transmission Date: 20111222
  Serious: Yes (Hospitalization)
  Sender: FDA-Public Use
  Company Number: 2011EN000002

PATIENT
  Age: 15 Year
  Sex: Female
  Weight: 64.8 kg

DRUGS (9)
  1. METHOTREXATE [Suspect]
     Indication: ACUTE LYMPHOCYTIC LEUKAEMIA
     Dosage: 60 MG; INTH
     Route: 037
     Dates: end: 20101230
  2. VINCRISTINE [Suspect]
     Indication: ACUTE LYMPHOCYTIC LEUKAEMIA
     Dosage: 6 MG;XI;IV
     Route: 042
     Dates: end: 20110119
  3. ONCASPAR [Suspect]
     Indication: ACUTE LYMPHOCYTIC LEUKAEMIA
     Dosage: 3925 IU;XI; IV
     Route: 042
     Dates: start: 20110119, end: 20110119
  4. CYTARABINE [Suspect]
     Indication: ACUTE LYMPHOCYTIC LEUKAEMIA
     Dosage: 2024 MG; ;IV
     Route: 042
     Dates: end: 20110116
  5. PAXIL [Concomitant]
  6. EZN-2285 (SC-PEG E. COLI L-ASPARAGINASE) [Suspect]
     Indication: ACUTE LYMPHOCYTIC LEUKAEMIA
     Dosage: 2100 IU*M2;X1; IV,  3550 IU;X1;IV
     Route: 042
     Dates: start: 20101214, end: 20101214
  7. EZN-2285 (SC-PEG E. COLI L-ASPARAGINASE) [Suspect]
     Indication: ACUTE LYMPHOCYTIC LEUKAEMIA
     Dosage: 2100 IU*M2;X1; IV,  3550 IU;X1;IV
     Route: 042
     Dates: start: 20101022, end: 20101022
  8. CYCLOPHOSPHAMIDE [Suspect]
     Indication: ACUTE LYMPHOCYTIC LEUKAEMIA
     Dosage: 3300 MG; IV
     Route: 042
     Dates: end: 20110106
  9. MERCAPTOPURINE [Suspect]
     Indication: ACUTE LYMPHOCYTIC LEUKAEMIA
     Dosage: 2900 MG; PO
     Route: 048
     Dates: end: 20110119

REACTIONS (31)
  - BLOOD CULTURE POSITIVE [None]
  - CULTURE URINE POSITIVE [None]
  - DIARRHOEA [None]
  - WHITE BLOOD CELL COUNT INCREASED [None]
  - LYMPHOPENIA [None]
  - ANAEMIA [None]
  - HYPOALBUMINAEMIA [None]
  - PLEURAL EFFUSION [None]
  - HAEMOGLOBIN DECREASED [None]
  - HYPOTENSION [None]
  - HYPOCALCAEMIA [None]
  - TACHYPNOEA [None]
  - ASCITES [None]
  - VULVOVAGINAL MYCOTIC INFECTION [None]
  - PYREXIA [None]
  - ORAL CANDIDIASIS [None]
  - LEUKOPENIA [None]
  - THROMBOCYTOPENIA [None]
  - ASPARTATE AMINOTRANSFERASE INCREASED [None]
  - DYSPNOEA [None]
  - HEPATIC STEATOSIS [None]
  - NEUTROPHIL COUNT DECREASED [None]
  - NEUTROPENIA [None]
  - ALANINE AMINOTRANSFERASE INCREASED [None]
  - CLOSTRIDIUM DIFFICILE COLITIS [None]
  - TRICHOTILLOMANIA [None]
  - SEPTIC SHOCK [None]
  - PNEUMONIA KLEBSIELLA [None]
  - LEUKAEMIC INFILTRATION [None]
  - ATELECTASIS [None]
  - PLATELET COUNT DECREASED [None]
